FAERS Safety Report 4999271-2 (Version None)
Quarter: 2006Q2

REPORT INFORMATION
  Report Type: 
  Country: None (occurrence: None)
  Receive Date: 20060509
  Receipt Date: 20060421
  Transmission Date: 20061013
  Serious: Yes (Hospitalization, Other)
  Sender: FDA-Public Use
  Company Number: US200604003663

PATIENT
  Age: 45 Year
  Sex: Female

DRUGS (3)
  1. HUMALOG [Suspect]
     Indication: DIABETES MELLITUS
     Dosage: AS NEEDED
     Dates: start: 19920101
  2. LANTUS [Concomitant]
  3. ALBUTEROL [Concomitant]

REACTIONS (4)
  - BLOOD CREATININE INCREASED [None]
  - GANGRENE [None]
  - LOSS OF CONSCIOUSNESS [None]
  - PLANTAR FASCIITIS [None]
